FAERS Safety Report 25084019 (Version 3)
Quarter: 2025Q2

REPORT INFORMATION
  Report Type: Spontaneous
  Country: US (occurrence: US)
  Receive Date: 20250317
  Receipt Date: 20250528
  Transmission Date: 20250716
  Serious: No
  Sender: SANOFI AVENTIS
  Company Number: US-SA-2025SA076588

PATIENT
  Age: 27 Year
  Sex: Female

DRUGS (5)
  1. DUPIXENT [Suspect]
     Active Substance: DUPILUMAB
     Indication: Nasal polyps
     Dosage: 300 MG, QOW
     Route: 058
     Dates: start: 202501
  2. LEUPROLIDE ACETATE [Concomitant]
     Active Substance: LEUPROLIDE ACETATE
     Dates: start: 202504, end: 202505
  3. HUMAN IMMUNOGLOBULIN G [Concomitant]
     Active Substance: HUMAN IMMUNOGLOBULIN G
     Dates: start: 202301
  4. ESTROGENS [Concomitant]
     Active Substance: ESTROGENS
     Dates: start: 20250401, end: 202505
  5. GONOL [AMPICILLIN;PROBENECID] [Concomitant]
     Dates: start: 202504, end: 202505

REACTIONS (7)
  - Anosmia [Unknown]
  - Cough [Unknown]
  - Back pain [Unknown]
  - Secretion discharge [Unknown]
  - Nasal congestion [Recovering/Resolving]
  - Chest discomfort [Recovered/Resolved]
  - Productive cough [Unknown]

NARRATIVE: CASE EVENT DATE: 20250101
